FAERS Safety Report 5451853-X (Version None)
Quarter: 2007Q3

REPORT INFORMATION
  Report Type: 
  Country: None (occurrence: None)
  Receive Date: 20070912
  Receipt Date: 20070905
  Transmission Date: 20080115
  Serious: Yes (Death, Hospitalization)
  Sender: FDA-Public Use
  Company Number: 510-5-2003-30636

PATIENT
  Age: 88 Year
  Sex: Male
  Weight: 75 kg

DRUGS (36)
  1. LIDOCAINE [Suspect]
     Indication: POST HERPETIC NEURALGIA
     Dosage: 1 PATCH A DAY
  2. NADROPARIN [Concomitant]
  3. PIROXICAM [Concomitant]
  4. MOVICOL [Concomitant]
  5. DEPRONAL [Concomitant]
  6. NEURONTIN [Concomitant]
  7. EUSAPRIM FORTE [Concomitant]
  8. FLUNARIZINE [Concomitant]
  9. BEFACT [Concomitant]
  10. LASIX [Concomitant]
  11. MOBIC [Concomitant]
  12. FUROSEMIDE [Concomitant]
  13. PREDNISOLONE [Concomitant]
  14. CARDIOASPIRINE [Concomitant]
  15. SYRAPRIM [Concomitant]
  16. COSOPT [Concomitant]
  17. VIDISIC [Concomitant]
  18. TRAFLOXAL [Concomitant]
  19. ARCOXIA [Concomitant]
  20. LUMIGAN [Concomitant]
  21. CARTEOL [Concomitant]
  22. DECA-DURABOLIN [Concomitant]
  23. ZOMETA [Concomitant]
  24. NEUPOGEN [Concomitant]
  25. AMUKIN [Concomitant]
  26. PLATELETS [Concomitant]
  27. RED BLOOD CELLS [Concomitant]
  28. FEMIBION [Concomitant]
  29. AUGMENTIN '125' [Concomitant]
  30. MAXIPEN [Concomitant]
  31. PERFUSALGAN [Concomitant]
  32. SOLU-MEDROL [Concomitant]
  33. ZYRTEC [Concomitant]
  34. MORPHINE [Concomitant]
  35. ENDOXAN [Concomitant]
  36. ISUPREL [Concomitant]

REACTIONS (14)
  - ARTHRITIS [None]
  - ASTHENIA [None]
  - BRADYCARDIA [None]
  - EPISTAXIS [None]
  - GENERAL PHYSICAL HEALTH DETERIORATION [None]
  - GLAUCOMA [None]
  - MEMORY IMPAIRMENT [None]
  - OSTEOARTHRITIS [None]
  - PANCYTOPENIA [None]
  - PNEUMONIA [None]
  - PRESYNCOPE [None]
  - RESPIRATORY TRACT INFECTION [None]
  - THROMBOCYTOPENIA [None]
  - WALDENSTROM'S MACROGLOBULINAEMIA [None]
